FAERS Safety Report 7926543-1 (Version None)
Quarter: 2011Q4

REPORT INFORMATION
  Report Type: 
  Country: None (occurrence: None)
  Receive Date: 20111118
  Receipt Date: 20111111
  Transmission Date: 20120403
  Serious: No
  Sender: FDA-Public Use
  Company Number: US-BIOGENIDEC-2011BI043668

PATIENT
  Age: 43 Year
  Sex: Female

DRUGS (1)
  1. TYSABRI [Suspect]
     Indication: MULTIPLE SCLEROSIS
     Route: 042
     Dates: start: 20111019

REACTIONS (6)
  - FEELING HOT [None]
  - FATIGUE [None]
  - PAIN IN EXTREMITY [None]
  - BAND SENSATION [None]
  - HYPOAESTHESIA [None]
  - PAIN [None]
